FAERS Safety Report 8349623-8 (Version None)
Quarter: 2012Q2

REPORT INFORMATION
  Report Type: 
  Country: None (occurrence: None)
  Receive Date: 20120510
  Receipt Date: 20120503
  Transmission Date: 20120825
  Serious: Yes (Hospitalization)
  Sender: FDA-Public Use
  Company Number: US-BAYER-2011-112993

PATIENT
  Age: 29 Year
  Sex: Female
  Weight: 86.168 kg

DRUGS (6)
  1. YAZ [Suspect]
     Dosage: UNK
     Dates: start: 20090901, end: 20091101
  2. METFORMIN HCL [Concomitant]
     Indication: POLYCYSTIC OVARIES
     Dosage: 850 MG, BID
  3. FLUTICASONE FUROATE [Concomitant]
     Indication: RHINITIS ALLERGIC
     Dosage: UNK UNK, PRN
     Dates: start: 20091105
  4. PAXIL [Concomitant]
  5. YASMIN [Suspect]
     Dosage: UNK
  6. LORATADINE [Concomitant]
     Indication: RHINITIS ALLERGIC
     Dosage: UNK UNK, PRN
     Dates: start: 20091105

REACTIONS (6)
  - DEEP VEIN THROMBOSIS [None]
  - EMOTIONAL DISTRESS [None]
  - INJURY [None]
  - GENERAL PHYSICAL HEALTH DETERIORATION [None]
  - PAIN [None]
  - ANXIETY [None]
